FAERS Safety Report 12120953 (Version 1)
Quarter: 2016Q1

REPORT INFORMATION
  Report Type: Spontaneous
  Country: US (occurrence: US)
  Receive Date: 20160226
  Receipt Date: 20160226
  Transmission Date: 20160526
  Serious: No
  Sender: FDA-Public Use
  Company Number: GXBR2015US002495

PATIENT
  Age: 13 Year
  Sex: Female
  Weight: 40.82 kg

DRUGS (1)
  1. BETAMETHASONE DIPROPIONATE. [Suspect]
     Active Substance: BETAMETHASONE DIPROPIONATE
     Indication: DRY SKIN
     Dosage: UNK DF, QD
     Route: 061

REACTIONS (2)
  - Dry skin [Unknown]
  - Burning sensation [Recovered/Resolved]

NARRATIVE: CASE EVENT DATE: 20151031
